FAERS Safety Report 22329278 (Version 1)
Quarter: 2023Q2

REPORT INFORMATION
  Report Type: Other
  Country: US (occurrence: None)
  Receive Date: 20230517
  Receipt Date: 20230517
  Transmission Date: 20230721
  Serious: Yes (Other)
  Sender: FDA-Public Use
  Company Number: US-ROCHE-3329920

PATIENT
  Age: 52 Year
  Sex: Female

DRUGS (4)
  1. OCREVUS [Suspect]
     Active Substance: OCRELIZUMAB
     Indication: Relapsing multiple sclerosis
     Dosage: LAST DOSE OF TREATMENT: 01/MAR/2022, ANTICIPATED DATE OF TREATMENT: SEP/2022, VIAL, REFILLS: 1, NEXT
     Route: 065
  2. TIZANIDINE [Concomitant]
     Active Substance: TIZANIDINE
  3. OXYCODONE [Concomitant]
     Active Substance: OXYCODONE
  4. HYDROCODONE [Concomitant]
     Active Substance: HYDROCODONE

REACTIONS (1)
  - Neoplasm malignant [Unknown]
